FAERS Safety Report 26208011 (Version 1)
Quarter: 2025Q4

REPORT INFORMATION
  Report Type: Spontaneous
  Country: US (occurrence: None)
  Receive Date: 20251225
  Receipt Date: 20251225
  Transmission Date: 20260117
  Serious: Yes (Hospitalization)
  Sender: FDA-CTU
  Company Number: None

PATIENT
  Age: 51 Year
  Sex: Male
  Weight: 129.7 kg

DRUGS (7)
  1. CYCLOPHOSPHAMIDE [Suspect]
     Active Substance: CYCLOPHOSPHAMIDE
     Dates: end: 20251213
  2. CYTARABINE [Suspect]
     Active Substance: CYTARABINE
     Dates: end: 20251211
  3. SPRYCEL [Suspect]
     Active Substance: DASATINIB
     Dates: end: 20251212
  4. DOXORUBICIN HYDROCHLORIDE [Suspect]
     Active Substance: DOXORUBICIN HYDROCHLORIDE
     Dates: end: 20251213
  5. METHOTREXATE [Suspect]
     Active Substance: METHOTREXATE
     Dates: end: 20251217
  6. PREDNISONE [Suspect]
     Active Substance: PREDNISONE
     Dates: end: 20251209
  7. VINCRISTINE SULFATE [Suspect]
     Active Substance: VINCRISTINE SULFATE
     Dates: end: 20251220

REACTIONS (2)
  - Subdural haematoma [None]
  - Subdural hygroma [None]

NARRATIVE: CASE EVENT DATE: 20251223
